FAERS Safety Report 6464539-X (Version None)
Quarter: 2009Q4

REPORT INFORMATION
  Report Type: 
  Country: None (occurrence: None)
  Receive Date: 20091201
  Receipt Date: 20091126
  Transmission Date: 20100525
  Serious: Yes (Other)
  Sender: FDA-Public Use
  Company Number: JP-PFIZER INC-2009296765

PATIENT

DRUGS (1)
  1. SOLU-MEDROL [Suspect]

REACTIONS (1)
  - PLATELET COUNT DECREASED [None]
